FAERS Safety Report 7992768-2 (Version None)
Quarter: 2011Q4

REPORT INFORMATION
  Report Type: 
  Country: None (occurrence: None)
  Receive Date: 20111219
  Receipt Date: 20101102
  Transmission Date: 20120403
  Serious: No
  Sender: FDA-Public Use
  Company Number: US-ASTRAZENECA-2010SE51938

PATIENT
  Age: 52 Year
  Sex: Female

DRUGS (5)
  1. CRESTOR [Suspect]
     Route: 048
  2. SIMCOR [Suspect]
     Route: 065
     Dates: start: 20100901
  3. UNKNOWN MEDICATION [Concomitant]
  4. NIASPAN [Suspect]
     Route: 065
  5. ACETYLSALICYLIC ACID SRT [Concomitant]

REACTIONS (3)
  - FLUSHING [None]
  - FEELING HOT [None]
  - PRURITUS [None]
